FAERS Safety Report 15337136 (Version 1)
Quarter: 2018Q3

REPORT INFORMATION
  Report Type: Spontaneous
  Country: GB (occurrence: GB)
  Receive Date: 20180831
  Receipt Date: 20180831
  Transmission Date: 20181010
  Serious: Yes (Death)
  Sender: FDA-Public Use
  Company Number: GB-ROCHE-2177663

PATIENT

DRUGS (2)
  1. RITUXIMAB. [Suspect]
     Active Substance: RITUXIMAB
     Indication: B-CELL PROLYMPHOCYTIC LEUKAEMIA
     Dosage: 375 MG/M2, 2?WEEKLY (CYCLE (C) 1?2
     Route: 042
  2. IDELALISIB [Suspect]
     Active Substance: IDELALISIB
     Indication: B-CELL PROLYMPHOCYTIC LEUKAEMIA
     Dosage: 150 MG, BID
     Route: 065

REACTIONS (2)
  - Lung neoplasm malignant [Fatal]
  - Second primary malignancy [Fatal]
